FAERS Safety Report 14639034 (Version 1)
Quarter: 2018Q1

REPORT INFORMATION
  Report Type: Spontaneous
  Country: FR (occurrence: FR)
  Receive Date: 20180315
  Receipt Date: 20180315
  Transmission Date: 20180509
  Serious: Yes (Other)
  Sender: FDA-Public Use
  Company Number: FR-MERCK KGAA-2043763

PATIENT
  Age: 59 Year
  Sex: Female

DRUGS (1)
  1. NOVOTHYROX [Suspect]
     Active Substance: LEVOTHYROXINE SODIUM
     Indication: PRODUCT USED FOR UNKNOWN INDICATION
     Dates: end: 2017

REACTIONS (22)
  - Dizziness [None]
  - Fatigue [None]
  - Depression [None]
  - Oral discomfort [None]
  - Gastrointestinal disorder [None]
  - Vertigo [Recovering/Resolving]
  - Emotional distress [None]
  - Anxiety [None]
  - Impaired work ability [None]
  - Asthenia [Recovering/Resolving]
  - Gastrointestinal sounds abnormal [None]
  - Decreased interest [None]
  - Depressed mood [None]
  - Loss of personal independence in daily activities [None]
  - Abdominal distension [None]
  - Swollen tongue [None]
  - Tension [None]
  - Diarrhoea [None]
  - Arrhythmia [Recovering/Resolving]
  - Gait disturbance [None]
  - Abdominal pain upper [None]
  - Salivary hypersecretion [None]
